FAERS Safety Report 16143601 (Version 2)
Quarter: 2019Q4

REPORT INFORMATION
  Report Type: Report from Study
  Country: US (occurrence: US)
  Receive Date: 20190401
  Receipt Date: 20191113
  Transmission Date: 20200122
  Serious: Yes (Hospitalization, Other)
  Sender: FDA-Public Use
  Company Number: US-TAKEDA-2018TUS006034

PATIENT
  Sex: Female

DRUGS (2)
  1. GABAPENTIN. [Concomitant]
     Active Substance: GABAPENTIN
     Dosage: UNK
  2. PONATINIB [Suspect]
     Active Substance: PONATINIB
     Indication: CHRONIC MYELOID LEUKAEMIA
     Dosage: 45 MILLIGRAM, QD
     Route: 048
     Dates: start: 20180215

REACTIONS (9)
  - Liver disorder [Unknown]
  - Nasal oedema [Recovering/Resolving]
  - Skin exfoliation [Unknown]
  - Fatigue [Unknown]
  - Eye swelling [Recovering/Resolving]
  - Swelling face [Recovering/Resolving]
  - Skin discolouration [Unknown]
  - Dry skin [Unknown]
  - Breast neoplasm [Unknown]
